FAERS Safety Report 14779889 (Version 1)
Quarter: 2018Q2

REPORT INFORMATION
  Report Type: Spontaneous
  Country: US (occurrence: US)
  Receive Date: 20180419
  Receipt Date: 20180419
  Transmission Date: 20180711
  Serious: No
  Sender: FDA-Public Use
  Company Number: US-009507513-1804USA000480

PATIENT
  Sex: Female

DRUGS (1)
  1. NEXPLANON [Suspect]
     Active Substance: ETONOGESTREL
     Dosage: 1 DF, 1 ROD
     Route: 059
     Dates: start: 20160915

REACTIONS (5)
  - Device breakage [Unknown]
  - Device dislocation [Unknown]
  - Device difficult to use [Unknown]
  - Complication of device removal [Unknown]
  - Complication of device removal [Unknown]

NARRATIVE: CASE EVENT DATE: 20180322
